FAERS Safety Report 5037562-X (Version None)
Quarter: 2006Q2

REPORT INFORMATION
  Report Type: 
  Country: None (occurrence: None)
  Receive Date: 20060628
  Receipt Date: 20060626
  Transmission Date: 20061013
  Serious: Yes (Life-Threatening, Hospitalization, Disabling)
  Sender: FDA-Public Use
  Company Number: US-GLAXOSMITHKLINE-A0610332A

PATIENT
  Age: 43 Year
  Sex: Female

DRUGS (5)
  1. CEFTAZIDIME [Suspect]
     Indication: DRUG USE FOR UNKNOWN INDICATION
     Dosage: 1G PER DAY
     Route: 042
     Dates: start: 20060618
  2. SEPTRA [Concomitant]
  3. FLUCONAZOLE [Concomitant]
  4. M.V.I. [Concomitant]
  5. PHOSLO [Concomitant]

REACTIONS (1)
  - ENCEPHALITIS [None]
